FAERS Safety Report 6564737-0 (Version None)
Quarter: 2010Q1

REPORT INFORMATION
  Report Type: 
  Country: None (occurrence: None)
  Receive Date: 20100201
  Receipt Date: 20100121
  Transmission Date: 20100710
  Serious: Yes (Hospitalization, Other)
  Sender: FDA-Public Use
  Company Number: JP-BAYER-200914059BYL

PATIENT
  Age: 63 Year
  Sex: Male
  Weight: 64 kg

DRUGS (11)
  1. NEXAVAR [Suspect]
     Indication: HEPATIC NEOPLASM MALIGNANT
     Dosage: TOTAL DAILY DOSE: 800 MG  UNIT DOSE: 200 MG
     Route: 048
     Dates: start: 20090904, end: 20091018
  2. NEXAVAR [Suspect]
     Dosage: TOTAL DAILY DOSE: 800 MG  UNIT DOSE: 200 MG
     Route: 048
     Dates: start: 20091019
  3. NEXAVAR [Suspect]
     Dosage: TOTAL DAILY DOSE: 400 MG  UNIT DOSE: 200 MG
     Route: 048
     Dates: start: 20091101, end: 20091211
  4. ZEFIX [Suspect]
     Indication: HEPATITIS B POSITIVE
     Route: 048
     Dates: start: 20060801
  5. FOIPAN [Concomitant]
     Dosage: SINCE BEFORE 2005
     Route: 048
  6. IA-CALL [Concomitant]
     Route: 013
     Dates: start: 20090805, end: 20090805
  7. NORVASC [Concomitant]
     Dosage: UNIT DOSE: 10 MG
     Route: 048
     Dates: start: 20090928
  8. JUZEN-TAIHO-TO [Concomitant]
     Dosage: UNIT DOSE: 2.5 G
     Route: 048
  9. URSO 250 [Concomitant]
     Dosage: UNIT DOSE: 200 MG
     Route: 048
  10. TAKEPRON [Concomitant]
     Dosage: UNIT DOSE: 30 MG
     Route: 048
  11. KERATINAMIN [Concomitant]
     Route: 061

REACTIONS (5)
  - ANAEMIA [None]
  - DECREASED APPETITE [None]
  - GASTRIC HAEMORRHAGE [None]
  - MALAISE [None]
  - PALMAR-PLANTAR ERYTHRODYSAESTHESIA SYNDROME [None]
